FAERS Safety Report 19681076 (Version 4)
Quarter: 2022Q1

REPORT INFORMATION
  Report Type: Report from Study
  Country: PT (occurrence: PT)
  Receive Date: 20210810
  Receipt Date: 20220105
  Transmission Date: 20220424
  Serious: Yes (Hospitalization)
  Sender: FDA-Public Use
  Company Number: PT-ROCHE-2760670

PATIENT
  Age: 60 Year
  Sex: Female

DRUGS (25)
  1. DOCETAXEL [Suspect]
     Active Substance: DOCETAXEL
     Indication: Breast cancer metastatic
     Dosage: UNK
     Route: 065
  2. DOCETAXEL [Suspect]
     Active Substance: DOCETAXEL
     Dosage: UNK
     Route: 065
     Dates: start: 20170504
  3. DOCETAXEL [Suspect]
     Active Substance: DOCETAXEL
     Dosage: 115.05 MILLIGRAM, Q2W
     Route: 042
     Dates: start: 20170121, end: 20170323
  4. DOCETAXEL [Suspect]
     Active Substance: DOCETAXEL
     Dosage: 115.05 MILLIGRAM
     Route: 042
     Dates: start: 20170504, end: 20170614
  5. PERJETA [Suspect]
     Active Substance: PERTUZUMAB
     Indication: Breast cancer metastatic
     Dosage: UNK
     Route: 065
  6. PERJETA [Suspect]
     Active Substance: PERTUZUMAB
     Dosage: 420 MILLIGRAM/SQ. METER, Q3W
     Route: 042
     Dates: start: 20170504, end: 20170731
  7. PERJETA [Suspect]
     Active Substance: PERTUZUMAB
     Dosage: 420 MILLIGRAM, Q3W
     Route: 042
     Dates: start: 20170213, end: 20170323
  8. HERCEPTIN [Suspect]
     Active Substance: TRASTUZUMAB
     Indication: Breast cancer metastatic
     Dosage: 600 MILLIGRAM, Q3W
     Route: 042
     Dates: start: 20170120, end: 20170323
  9. HERCEPTIN [Suspect]
     Active Substance: TRASTUZUMAB
     Dosage: UNK
     Route: 065
  10. HERCEPTIN [Suspect]
     Active Substance: TRASTUZUMAB
     Dosage: 6 MILLIGRAM/SQ. METER
     Route: 042
     Dates: start: 20170504
  11. HERCEPTIN [Suspect]
     Active Substance: TRASTUZUMAB
     Dosage: 600 MILLIGRAM, Q3W
     Route: 042
     Dates: start: 20170504, end: 20170830
  12. HERCEPTIN [Suspect]
     Active Substance: TRASTUZUMAB
     Dosage: 600 MILLIGRAM, Q3W
     Route: 042
     Dates: start: 20171010, end: 20180102
  13. HERCEPTIN [Suspect]
     Active Substance: TRASTUZUMAB
     Dosage: 600 MILLIGRAM, Q3W
     Route: 042
     Dates: start: 20180221, end: 20181218
  14. HERCEPTIN [Suspect]
     Active Substance: TRASTUZUMAB
     Dosage: 600 MILLIGRAM
     Route: 042
     Dates: start: 20190116
  15. PERTUZUMAB [Suspect]
     Active Substance: PERTUZUMAB
     Indication: Breast cancer metastatic
     Dosage: 420 MILLIGRAM, Q3W
     Route: 042
     Dates: start: 20170504, end: 20170731
  16. PERTUZUMAB [Suspect]
     Active Substance: PERTUZUMAB
     Dosage: 420 MILLIGRAM, Q3W
     Route: 042
     Dates: start: 20170213, end: 20170323
  17. TRASTUZUMAB [Suspect]
     Active Substance: TRASTUZUMAB
     Indication: Breast cancer metastatic
     Dosage: 600 MILLIGRAM, Q3W
     Route: 042
     Dates: start: 20171010, end: 20180102
  18. TRASTUZUMAB [Suspect]
     Active Substance: TRASTUZUMAB
     Dosage: 600 MILLIGRAM, Q3W
     Route: 042
     Dates: start: 20180221, end: 20181218
  19. TRASTUZUMAB [Suspect]
     Active Substance: TRASTUZUMAB
     Dosage: 600 MILLIGRAM, Q3W
     Route: 042
     Dates: start: 20170120, end: 20170323
  20. TRASTUZUMAB [Suspect]
     Active Substance: TRASTUZUMAB
     Dosage: 600 MILLIGRAM
     Route: 042
     Dates: start: 20190116
  21. TRASTUZUMAB [Suspect]
     Active Substance: TRASTUZUMAB
     Dosage: 600 MILLIGRAM/KILOGRAM
     Route: 042
     Dates: start: 20170504
  22. ZOLEDRONIC ACID [Concomitant]
     Active Substance: ZOLEDRONIC ACID
     Dosage: 5 MILLIGRAM, Q3W
     Route: 042
     Dates: start: 20180830, end: 20190116
  23. ZOLEDRONIC ACID [Concomitant]
     Active Substance: ZOLEDRONIC ACID
     Dosage: 5 MILLIGRAM, Q3W
     Route: 042
     Dates: start: 20190221
  24. OMEPRAZOLE [Concomitant]
     Active Substance: OMEPRAZOLE
     Dosage: UNK (ONGOING = CHECKED)
     Dates: start: 20170615
  25. OLANZAPINE [Concomitant]
     Active Substance: OLANZAPINE
     Dosage: UNK (ONGOING = NOT CHECKED)
     Dates: start: 20170615, end: 20190401

REACTIONS (4)
  - Colitis [Recovered/Resolved]
  - General physical health deterioration [Recovered/Resolved]
  - Large intestine infection [Recovered/Resolved]
  - Ejection fraction decreased [Recovered/Resolved]

NARRATIVE: CASE EVENT DATE: 20170617
